FAERS Safety Report 9266681 (Version 1)
Quarter: 2013Q2

REPORT INFORMATION
  Report Type: Spontaneous
  Country: CN (occurrence: CN)
  Receive Date: 20130502
  Receipt Date: 20130502
  Transmission Date: 20140414
  Serious: Yes (Hospitalization)
  Sender: FDA-Public Use
  Company Number: CN-BAYER-2013-053371

PATIENT
  Age: 64 Year
  Sex: Female
  Weight: 60 kg

DRUGS (5)
  1. ACETYLSALICYLIC ACID({=100 MG) [Suspect]
     Indication: THROMBOSIS
     Dosage: 100 MG, QD
     Route: 048
     Dates: start: 20120301, end: 20120312
  2. BETAHISTINE MESILATE [Suspect]
     Indication: VERTIGO
     Dosage: 6 MG, TID
     Route: 048
     Dates: start: 20120304, end: 20130313
  3. SIMVASTATIN [Suspect]
     Dosage: 20 MG, QD
     Route: 048
     Dates: start: 20120301, end: 20120312
  4. HEPARIN SODIUM [Suspect]
     Indication: ANTICOAGULANT THERAPY
     Dosage: 4250 IU, BID
     Route: 058
     Dates: start: 20120307, end: 20120311
  5. MECOBALAMIN [Suspect]
     Indication: NEUROPATHY PERIPHERAL
     Dosage: 500 ?G, QD
     Route: 041
     Dates: start: 20120301, end: 20120314

REACTIONS (1)
  - Hepatic function abnormal [Recovering/Resolving]
